FAERS Safety Report 8935706 (Version 2)
Quarter: 2013Q1

REPORT INFORMATION
  Report Type: Spontaneous
  Country: US (occurrence: US)
  Receive Date: 20121130
  Receipt Date: 20130329
  Transmission Date: 20140127
  Serious: Yes (Other)
  Sender: FDA-Public Use
  Company Number: US-ELI_LILLY_AND_COMPANY-US201211003388

PATIENT
  Age: 85 None
  Sex: Female

DRUGS (6)
  1. FORTEO [Suspect]
     Indication: OSTEOPOROSIS
     Dosage: 20 UG, BID
     Dates: start: 20121010, end: 20121108
  2. FORTEO [Suspect]
     Dosage: UNK, QD
  3. PLAVIX [Concomitant]
  4. LOVASTATIN [Concomitant]
  5. LISINOPRIL [Concomitant]
  6. HYDROCHLOROTHIAZIDE [Concomitant]

REACTIONS (12)
  - Transient ischaemic attack [Unknown]
  - Gait disturbance [Unknown]
  - Malaise [Unknown]
  - Balance disorder [Unknown]
  - Eye disorder [Unknown]
  - Dysgraphia [Unknown]
  - Overdose [Recovered/Resolved]
  - Influenza [Unknown]
  - Medication error [Unknown]
  - Arthralgia [Unknown]
  - Joint injury [Unknown]
  - Muscle spasms [Unknown]
